FAERS Safety Report 9768988 (Version 1)
Quarter: 2013Q3

REPORT INFORMATION
  Report Type: Spontaneous
  Country: US (occurrence: None)
  Receive Date: 20130829
  Receipt Date: 20130829
  Transmission Date: 20140515
  Serious: Yes (Hospitalization)
  Sender: FDA-Public Use
  Company Number: 54973 AE # 1025

PATIENT
  Age: 17 Year
  Sex: Female

DRUGS (1)
  1. HYLAND^S NIGHTTIME COLD ^N COUGH 4 KIDS LIQUID [Suspect]
     Indication: NASOPHARYNGITIS
     Dosage: 3 TEASPOONS

REACTIONS (2)
  - Abdominal pain upper [None]
  - Stomach mass [None]
